FAERS Safety Report 5704928-1 (Version None)
Quarter: 2008Q2

REPORT INFORMATION
  Report Type: 
  Country: None (occurrence: None)
  Receive Date: 20080414
  Receipt Date: 20080403
  Transmission Date: 20081010
  Serious: Yes (Hospitalization)
  Sender: FDA-Public Use
  Company Number: US-AMGEN-QUU272905

PATIENT
  Sex: Female

DRUGS (2)
  1. ENBREL [Suspect]
     Indication: RHEUMATOID ARTHRITIS
     Route: 058
     Dates: start: 20070520
  2. ARAVA [Concomitant]
     Route: 048
     Dates: start: 20061201

REACTIONS (2)
  - INJECTION SITE IRRITATION [None]
  - POST PROCEDURAL COMPLICATION [None]
